FAERS Safety Report 8992482 (Version 13)
Quarter: 2015Q3

REPORT INFORMATION
  Report Type: Report from Study
  Country: CA (occurrence: CA)
  Receive Date: 20121231
  Receipt Date: 20150720
  Transmission Date: 20151125
  Serious: Yes (Other)
  Sender: FDA-Public Use
  Company Number: PHHY2012CA120903

PATIENT
  Age: 51 Year
  Sex: Male

DRUGS (4)
  1. SANDOSTATIN LAR DEPOT [Suspect]
     Active Substance: OCTREOTIDE ACETATE
     Dosage: 30 MG, QMO
     Route: 030
     Dates: end: 20141113
  2. SANDOSTATIN LAR DEPOT [Suspect]
     Active Substance: OCTREOTIDE ACETATE
     Dosage: 30 MG, QMO
     Route: 030
     Dates: start: 20141114
  3. 5-FU [Concomitant]
     Active Substance: FLUOROURACIL
     Indication: PRODUCT USED FOR UNKNOWN INDICATION
     Route: 065
  4. SANDOSTATIN LAR DEPOT [Suspect]
     Active Substance: OCTREOTIDE ACETATE
     Indication: NEUROENDOCRINE TUMOUR
     Dosage: 20 MG, QMO
     Route: 030
     Dates: start: 20121114, end: 20121114

REACTIONS (13)
  - Diverticulitis [Unknown]
  - Influenza [Unknown]
  - Palmar-plantar erythrodysaesthesia syndrome [Unknown]
  - Gastroenteritis viral [Unknown]
  - Increased appetite [Unknown]
  - Diabetic complication [Recovering/Resolving]
  - Polyuria [Recovering/Resolving]
  - Blood glucose increased [Unknown]
  - Haemorrhoids [Unknown]
  - Pain [Unknown]
  - Blood pressure systolic increased [Unknown]
  - Weight decreased [Unknown]
  - Dry mouth [Recovering/Resolving]

NARRATIVE: CASE EVENT DATE: 20121118
